FAERS Safety Report 12280721 (Version 2)
Quarter: 2021Q1

REPORT INFORMATION
  Report Type: Spontaneous
  Country: US (occurrence: US)
  Receive Date: 20160419
  Receipt Date: 20210312
  Transmission Date: 20210419
  Serious: Yes (Hospitalization)
  Sender: FDA-Public Use
  Company Number: US-AUROBINDO-AUR-APL-2016-04665

PATIENT
  Age: 82 Year
  Sex: Male

DRUGS (5)
  1. ALPRAZOLAM TABLETS USP 0.25MG [Suspect]
     Active Substance: ALPRAZOLAM
     Dosage: 1.5 DOSAGE FORM, EACH NIGHT
     Route: 065
  2. MORPHINE [Suspect]
     Active Substance: MORPHINE
     Indication: PAIN
     Dosage: 120 MILLIGRAM, ONCE A DAY
     Route: 048
  3. OXYCODONE [Suspect]
     Active Substance: OXYCODONE
     Indication: PAIN
     Dosage: 1 DOSAGE FORM, TWO TIMES A DAY
     Route: 048
  4. OXYCODONE [Suspect]
     Active Substance: OXYCODONE
     Indication: PAIN
     Dosage: 1 DOSAGE FORM, EVERY MORNING
     Route: 048
  5. ALPRAZOLAM TABLETS USP 0.25MG [Suspect]
     Active Substance: ALPRAZOLAM
     Indication: ANXIETY
     Dosage: 0.375 MILLIGRAM, NIGHTLY
     Route: 065

REACTIONS (2)
  - Cognitive disorder [Recovered/Resolved]
  - Delirium [Recovered/Resolved]
